FAERS Safety Report 7053329-5 (Version None)
Quarter: 2010Q4

REPORT INFORMATION
  Report Type: 
  Country: None (occurrence: None)
  Receive Date: 20101020
  Receipt Date: 20101014
  Transmission Date: 20110411
  Serious: Yes (Death, Hospitalization)
  Sender: FDA-Public Use
  Company Number: PHFR2010GB00645

PATIENT
  Sex: Female

DRUGS (1)
  1. CLOZARIL [Suspect]
     Indication: SCHIZOPHRENIA
     Dosage: 150 MG, UNK
     Route: 048
     Dates: start: 19971023

REACTIONS (6)
  - FALL [None]
  - FIBULA FRACTURE [None]
  - LOWER LIMB FRACTURE [None]
  - PNEUMONIA [None]
  - RESPIRATORY FAILURE [None]
  - TIBIA FRACTURE [None]
